FAERS Safety Report 7941576-7 (Version None)
Quarter: 2011Q4

REPORT INFORMATION
  Report Type: 
  Country: None (occurrence: None)
  Receive Date: 20111122
  Receipt Date: 20111122
  Transmission Date: 20120403
  Serious: Yes (Hospitalization)
  Sender: FDA-Public Use
  Company Number: None

PATIENT
  Age: 63 Year
  Sex: Male
  Weight: 71.9 kg

DRUGS (4)
  1. VANCOMYCIN [Suspect]
     Indication: STAPHYLOCOCCAL INFECTION
     Dosage: 1000 MG BID IV
     Route: 042
     Dates: start: 20110906, end: 20110907
  2. VANCOMYCIN [Suspect]
     Indication: SEPSIS
     Dosage: 1000 MG BID IV
     Route: 042
     Dates: start: 20110906, end: 20110907
  3. VANCOMYCIN [Suspect]
     Indication: POSTOPERATIVE WOUND INFECTION
     Dosage: 1000 MG BID IV
     Route: 042
     Dates: start: 20110906, end: 20110907
  4. VANCOMYCIN [Suspect]
     Dosage: 1000 MG  EVERY DAY
     Route: 042
     Dates: start: 20110920, end: 20110925

REACTIONS (1)
  - RENAL FAILURE ACUTE [None]
